FAERS Safety Report 19952573 (Version 6)
Quarter: 2023Q2

REPORT INFORMATION
  Report Type: Report from Study
  Country: US (occurrence: US)
  Receive Date: 20211013
  Receipt Date: 20230406
  Transmission Date: 20230722
  Serious: No
  Sender: FDA-Public Use
  Company Number: NVSC2021US234222

PATIENT
  Age: 11 Year
  Sex: Female
  Weight: 43.091 kg

DRUGS (4)
  1. OMNITROPE [Suspect]
     Active Substance: SOMATROPIN
     Indication: Short stature
     Dosage: 1.8 MG, QD
     Route: 058
     Dates: start: 20210905, end: 20211017
  2. OMNITROPE [Suspect]
     Active Substance: SOMATROPIN
     Dosage: 1.8 MG
     Route: 058
     Dates: start: 20210710, end: 20211027
  3. SALZEN [Concomitant]
     Indication: Product used for unknown indication
     Dosage: UNK UNK, QD (DILUTE THE 8.8 MG VIAL WITH LEC DILUENT; THEN INJECT 0.2ML (1.8MG) SQ ONCE DAILY)
     Route: 058
     Dates: start: 20211028
  4. ETHYL CHLORIDE [Concomitant]
     Active Substance: ETHYL CHLORIDE
     Indication: Product used for unknown indication
     Dosage: UNK, QD
     Route: 061
     Dates: start: 20210921

REACTIONS (5)
  - Injection site pain [Recovered/Resolved with Sequelae]
  - Pain [Recovered/Resolved with Sequelae]
  - Anxiety [Unknown]
  - Product dose omission issue [Unknown]
  - Wrong technique in device usage process [Unknown]

NARRATIVE: CASE EVENT DATE: 20210905
